FAERS Safety Report 4878862-3 (Version None)
Quarter: 2005Q4

REPORT INFORMATION
  Report Type: 
  Country: None (occurrence: None)
  Receive Date: 20051209
  Receipt Date: 20050728
  Transmission Date: 20060501
  Serious: Yes (Other)
  Sender: FDA-Public Use
  Company Number: USA-2003-0008818

PATIENT
  Age: 24 Year
  Sex: Male
  Weight: 105.2 kg

DRUGS (9)
  1. OXYCONTIN [Suspect]
     Indication: PAIN
     Dosage: 20 MG, Q12H, ORAL
     Route: 048
     Dates: start: 20001121
  2. OXYIR [Concomitant]
  3. INDERAL [Concomitant]
  4. ZOLOFT [Concomitant]
  5. XANAX [Concomitant]
  6. ZANAFLEX [Concomitant]
  7. NEURONTIN [Concomitant]
  8. ROXICODONE [Concomitant]
  9. LORTAB [Concomitant]

REACTIONS (30)
  - ANXIETY [None]
  - ARTHRALGIA [None]
  - BACK PAIN [None]
  - CONFUSIONAL STATE [None]
  - CONSTIPATION [None]
  - DEPRESSION [None]
  - DIARRHOEA [None]
  - DRUG DEPENDENCE [None]
  - DRUG INEFFECTIVE [None]
  - DRUG TOLERANCE [None]
  - DRUG WITHDRAWAL SYNDROME [None]
  - FATIGUE [None]
  - HEADACHE [None]
  - HYPOAESTHESIA [None]
  - INADEQUATE ANALGESIA [None]
  - INSOMNIA [None]
  - IRRITABILITY [None]
  - LIBIDO DECREASED [None]
  - MEDICATION ERROR [None]
  - MOOD SWINGS [None]
  - MUSCLE SPASMS [None]
  - NAUSEA [None]
  - NERVOUSNESS [None]
  - PAIN [None]
  - PAIN IN EXTREMITY [None]
  - PARAESTHESIA [None]
  - TINNITUS [None]
  - TREMOR [None]
  - VOMITING [None]
  - WEIGHT DECREASED [None]
